FAERS Safety Report 25691422 (Version 2)
Quarter: 2025Q3

REPORT INFORMATION
  Report Type: Spontaneous
  Country: JP (occurrence: JP)
  Receive Date: 20250818
  Receipt Date: 20250827
  Transmission Date: 20251021
  Serious: Yes (Other)
  Sender: PFIZER
  Company Number: JP-PFIZER INC-PV202500097550

PATIENT
  Age: 50 Year
  Sex: Female
  Weight: 91.4 kg

DRUGS (10)
  1. HYDROCORTISONE [Suspect]
     Active Substance: HYDROCORTISONE
     Indication: Steroid withdrawal syndrome
     Dosage: 15 MG, 1X/DAY
     Route: 048
  2. HYDROCORTISONE [Suspect]
     Active Substance: HYDROCORTISONE
     Dosage: INCREASED TO 20 MG/DAY;9D AFTER VISIT TO DEPT
     Route: 048
  3. HYDROCORTISONE [Suspect]
     Active Substance: HYDROCORTISONE
     Dosage: REDUCED TO 15 MG/DAY
     Route: 048
  4. CLOBETASOL [Suspect]
     Active Substance: CLOBETASOL
     Indication: Benign familial pemphigus
     Dosage: PP TO 50 G/DAY.
     Route: 061
  5. BETAMETHASONE [Suspect]
     Active Substance: BETAMETHASONE
     Indication: Benign familial pemphigus
     Dosage: 30 G, 1X/DAY
     Route: 061
  6. BETAMETHASONE [Suspect]
     Active Substance: BETAMETHASONE
     Dosage: REDUCED TO 15 G/DAY
     Route: 061
  7. BETAMETHASONE [Suspect]
     Active Substance: BETAMETHASONE
     Route: 061
  8. BETAMETHASONE [Suspect]
     Active Substance: BETAMETHASONE
     Dosage: ON DAY 90
     Route: 061
  9. BETAMETHASONE DIPROPIONATE\CALCIPOTRIENE MONOHYDRATE [Suspect]
     Active Substance: BETAMETHASONE DIPROPIONATE\CALCIPOTRIENE MONOHYDRATE
     Indication: Benign familial pemphigus
     Route: 061
  10. APREMILAST [Concomitant]
     Active Substance: APREMILAST

REACTIONS (7)
  - Pseudo Cushing^s syndrome [Unknown]
  - Condition aggravated [Unknown]
  - Glucose tolerance impaired [Unknown]
  - Compression fracture [Unknown]
  - Osteoporosis [Unknown]
  - Insomnia [Recovering/Resolving]
  - Oral candidiasis [Unknown]
